FAERS Safety Report 6016000-4 (Version None)
Quarter: 2008Q4

REPORT INFORMATION
  Report Type: 
  Country: None (occurrence: None)
  Receive Date: 20081222
  Receipt Date: 20081103
  Transmission Date: 20090506
  Serious: Yes (Hospitalization, Other)
  Sender: FDA-Public Use
  Company Number: ES-AVENTIS-200821698GDDC

PATIENT
  Age: 34 Year
  Sex: Female
  Weight: 47.5 kg

DRUGS (5)
  1. ARAVA [Suspect]
     Indication: RHEUMATOID ARTHRITIS
     Route: 048
     Dates: start: 20080529, end: 20080802
  2. ZAMENE [Concomitant]
     Dosage: DOSE: UNK
  3. ENBREL [Concomitant]
     Dosage: DOSE: UNK
  4. MTX                                /00113801/ [Concomitant]
     Dosage: DOSE: UNK
  5. LEDERFOLIN                         /00566702/ [Concomitant]
     Dosage: DOSE: UNK

REACTIONS (1)
  - SUICIDE ATTEMPT [None]
